FAERS Safety Report 21795423 (Version 3)
Quarter: 2023Q2

REPORT INFORMATION
  Report Type: Report from Study
  Country: US (occurrence: US)
  Receive Date: 20221229
  Receipt Date: 20230608
  Transmission Date: 20230722
  Serious: Yes (Hospitalization, Other)
  Sender: FDA-Public Use
  Company Number: US-ABBVIE-4251078

PATIENT
  Age: 67 Year
  Sex: Male
  Weight: 80 kg

DRUGS (15)
  1. VENCLEXTA [Suspect]
     Active Substance: VENETOCLAX
     Indication: Product used for unknown indication
     Dosage: FORM STRENGTH 100 MILLIGRAM
     Route: 048
     Dates: start: 20211102
  2. VENCLEXTA [Suspect]
     Active Substance: VENETOCLAX
     Indication: Product used for unknown indication
     Dosage: FORM STRENGTH 100 MILLIGRAM
     Route: 048
     Dates: start: 20230105, end: 20230113
  3. VENCLEXTA [Suspect]
     Active Substance: VENETOCLAX
     Indication: Product used for unknown indication
     Dosage: FORM STRENGTH 100 MILLIGRAM
     Route: 048
     Dates: start: 20230123
  4. ZOLOFT [Concomitant]
     Active Substance: SERTRALINE HYDROCHLORIDE
     Indication: Product used for unknown indication
     Dosage: % AM % PM (LLS COVERS)
     Route: 048
  5. ELIQUIS [Concomitant]
     Active Substance: APIXABAN
     Indication: Product used for unknown indication
     Dosage: 2 DAILY 1-AM + 1-PM (LLS COVERS)
     Route: 048
  6. ACYCLOVIR [Concomitant]
     Active Substance: ACYCLOVIR
     Indication: Product used for unknown indication
     Dosage: 2DAILY LAM + 1PM (LLS COVERS)
     Route: 048
  7. Fluticasone Propionateg (Flonase) [Concomitant]
     Indication: Product used for unknown indication
     Dosage: SQUIRT INTO EACH NOSTRIL TWICE DAILY
  8. Hydrocortisone Tropical Proctozone-HCL [Concomitant]
     Indication: Product used for unknown indication
     Dosage: TROPICAL, FORM STRENGTH 2.5 PERCENT, AS NEEDED
  9. Tamsulosin (Generic for Flomax) [Concomitant]
     Indication: Product used for unknown indication
     Dosage: DAILY (LLS COVERS)
  10. PRASTERONE [Concomitant]
     Active Substance: PRASTERONE
     Indication: Product used for unknown indication
     Dosage: PROBIOTIC - 10 -STRAINS, 20-BILLION LIVE CULTURES 1-DAILY, FORM STRENGTH 100 MILLIGRAM
  11. Alprazolam (Generic for Xanex) [Concomitant]
     Indication: Product used for unknown indication
     Dosage: 1 TO 1 1/2 DAILY PM
  12. Testosterone (Androgel) [Concomitant]
     Indication: Product used for unknown indication
     Dosage: PUMP 1.62%, FORM STRENGTH 20.25 MILLIGRAM, APPLY 4 TIMES DAILY
  13. Finasteride (Kidneys, Dr Hatcher) [Concomitant]
     Indication: Product used for unknown indication
     Dosage: FREQUENCY TEXT: 1-DAILY
  14. SOTALOL [Concomitant]
     Active Substance: SOTALOL
     Indication: Product used for unknown indication
     Dosage: BREAK IN HALF- 1/2 AM 1/2 PM (IF HEART RATE IS 50 ABOVE) FORM STRENGTH 120 MILLIGRAM
  15. MINERALS\VITAMINS [Concomitant]
     Active Substance: MINERALS\VITAMINS
     Indication: Product used for unknown indication
     Dosage: FOR MEN 50+, 1-DAILY AM

REACTIONS (14)
  - Atrial fibrillation [Recovered/Resolved]
  - Blood urine present [Recovered/Resolved]
  - Testicular haemorrhage [Not Recovered/Not Resolved]
  - Respiratory syncytial virus infection [Recovered/Resolved]
  - Platelet count decreased [Unknown]
  - Vomiting [Unknown]
  - Pneumonia [Unknown]
  - Fall [Recovered/Resolved]
  - Weight decreased [Recovered/Resolved]
  - Upper respiratory tract infection [Recovering/Resolving]
  - Upper respiratory tract infection [Recovered/Resolved]
  - Wheelchair user [Recovered/Resolved]
  - Haematospermia [Recovered/Resolved]
  - White blood cell count decreased [Unknown]

NARRATIVE: CASE EVENT DATE: 20211102
